FAERS Safety Report 11614155 (Version 1)
Quarter: 2015Q4

REPORT INFORMATION
  Report Type: Spontaneous
  Country: US (occurrence: US)
  Receive Date: 20151008
  Receipt Date: 20151008
  Transmission Date: 20160304
  Serious: Yes (Hospitalization)
  Sender: FDA-Public Use
  Company Number: US-ALLERGAN-1520432US

PATIENT
  Age: 69 Year
  Sex: Male

DRUGS (5)
  1. AZOPT [Suspect]
     Active Substance: BRINZOLAMIDE
     Dosage: 2 GTT, BID, EACH EYE
     Dates: start: 20150924, end: 20150924
  2. PRED FORTE [Suspect]
     Active Substance: PREDNISOLONE ACETATE
     Indication: PRODUCT USED FOR UNKNOWN INDICATION
     Dosage: 1 DROP, QID, RIGHT EYE
     Dates: start: 20150512
  3. ALPHAGAN P [Suspect]
     Active Substance: BRIMONIDINE TARTRATE
     Indication: PRODUCT USED FOR UNKNOWN INDICATION
     Dosage: 1 DROP EACH EYE, BID
     Dates: start: 20150512
  4. BROMFENAC [Suspect]
     Active Substance: BROMFENAC SODIUM
     Dosage: 1 GTT, QD, RIGHT EYE
     Dates: start: 20150512
  5. AZOPT [Suspect]
     Active Substance: BRINZOLAMIDE
     Indication: GLAUCOMA
     Dosage: 2 GTT, BID, EACH EYE
     Dates: start: 20150512

REACTIONS (4)
  - Pharyngeal erythema [Recovered/Resolved]
  - Swelling face [Recovered/Resolved]
  - Vocal cord disorder [Recovered/Resolved]
  - Eye discharge [Unknown]

NARRATIVE: CASE EVENT DATE: 20150921
